FAERS Safety Report 14257715 (Version 2)
Quarter: 2017Q4

REPORT INFORMATION
  Report Type: Spontaneous
  Country: US (occurrence: US)
  Receive Date: 20171207
  Receipt Date: 20171208
  Transmission Date: 20180321
  Serious: Yes (Other)
  Sender: FDA-Public Use
  Company Number: US-CIPLA LTD.-2017US21453

PATIENT

DRUGS (9)
  1. ATORVASTATIN [Suspect]
     Active Substance: ATORVASTATIN
     Dosage: 10 MG PER DAY
     Route: 065
  2. ROSUVASTATIN. [Suspect]
     Active Substance: ROSUVASTATIN
     Dosage: 10 MG PER DAY
     Route: 065
  3. MITOMYCIN. [Concomitant]
     Active Substance: MITOMYCIN
     Indication: TRANSITIONAL CELL CARCINOMA
     Dosage: UNK
     Route: 065
  4. CLOPIDOGREL [Concomitant]
     Active Substance: CLOPIDOGREL BISULFATE
     Indication: PERIPHERAL ARTERIAL OCCLUSIVE DISEASE
     Dosage: UNK
     Route: 065
  5. COLESEVELAM [Suspect]
     Active Substance: COLESEVELAM
     Dosage: UNK
     Route: 065
  6. ACETYL SALICYLIC ACID [Concomitant]
     Active Substance: ASPIRIN
     Indication: PERIPHERAL ARTERIAL OCCLUSIVE DISEASE
     Dosage: UNK
     Route: 065
  7. BUDESONIDE. [Suspect]
     Active Substance: BUDESONIDE
     Indication: SHORT-BOWEL SYNDROME
     Dosage: UNK
     Route: 065
  8. CYCLOSPORIN [Suspect]
     Active Substance: CYCLOSPORINE
     Indication: IMMUNOSUPPRESSANT DRUG THERAPY
     Dosage: UNK
     Route: 065
  9. EVOLOCUMAB [Suspect]
     Active Substance: EVOLOCUMAB
     Dosage: 420 MG, MONTHLY
     Route: 058
     Dates: start: 201511

REACTIONS (3)
  - Hypertension [Recovering/Resolving]
  - Chronic kidney disease [Unknown]
  - Arteriosclerosis [Unknown]
